FAERS Safety Report 5554985-0 (Version None)
Quarter: 2007Q4

REPORT INFORMATION
  Report Type: 
  Country: None (occurrence: None)
  Receive Date: 20071213
  Receipt Date: 20071210
  Transmission Date: 20080405
  Serious: Yes (Death)
  Sender: FDA-Public Use
  Company Number: BR-ASTRAZENECA-2007UW27958

PATIENT
  Age: 81 Year
  Sex: Female

DRUGS (1)
  1. SYMBICORT [Suspect]
     Indication: LUNG NEOPLASM MALIGNANT
     Route: 055
     Dates: start: 20071001

REACTIONS (1)
  - DEATH [None]
